FAERS Safety Report 7504325-2 (Version None)
Quarter: 2011Q2

REPORT INFORMATION
  Report Type: 
  Country: None (occurrence: None)
  Receive Date: 20110404
  Receipt Date: 20101007
  Transmission Date: 20111010
  Serious: Yes (Other)
  Sender: FDA-Public Use
  Company Number: 011602

PATIENT
  Age: 61 Year
  Sex: Male

DRUGS (2)
  1. HYDROXYUREA [Concomitant]
  2. BUSULFEX [Suspect]
     Indication: CHRONIC MYELOID LEUKAEMIA

REACTIONS (2)
  - PNEUMONIA CRYPTOCOCCAL [None]
  - MENINGITIS CRYPTOCOCCAL [None]
